FAERS Safety Report 19740189 (Version 5)
Quarter: 2024Q3

REPORT INFORMATION
  Report Type: Spontaneous
  Country: US (occurrence: US)
  Receive Date: 20210824
  Receipt Date: 20240805
  Transmission Date: 20241017
  Serious: Yes (Hospitalization, Disabling, Other)
  Sender: ORGANON
  Company Number: US-ORGANON-O2108USA001811

PATIENT
  Sex: Male
  Weight: 14.7 kg

DRUGS (9)
  1. SINGULAIR [Suspect]
     Active Substance: MONTELUKAST SODIUM
     Dosage: 5 MILLIGRAM
     Route: 048
     Dates: start: 2004
  2. SINGULAIR [Suspect]
     Active Substance: MONTELUKAST SODIUM
     Dosage: 5 MILLIGRAM
     Route: 048
     Dates: start: 2004, end: 2010
  3. SINGULAIR [Suspect]
     Active Substance: MONTELUKAST SODIUM
     Dosage: 10 MILLIGRAM
     Route: 048
     Dates: start: 2010, end: 2015
  4. SINGULAIR [Suspect]
     Active Substance: MONTELUKAST SODIUM
     Dosage: 5 MILLIGRAM
     Route: 048
     Dates: start: 2016, end: 2020
  5. SINGULAIR [Suspect]
     Active Substance: MONTELUKAST SODIUM
     Dosage: 4 MILLIGRAM, QD
     Route: 048
  6. SINGULAIR [Suspect]
     Active Substance: MONTELUKAST SODIUM
     Dosage: 5 MILLIGRAM, QD
     Route: 048
  7. MONTELUKAST SODIUM [Suspect]
     Active Substance: MONTELUKAST SODIUM
     Dosage: UNK
     Dates: start: 2012, end: 2020
  8. VISTARIL [Concomitant]
     Active Substance: HYDROXYZINE PAMOATE
     Indication: Sleep disorder
     Dosage: UNK
  9. GASTROCROM [Concomitant]
     Active Substance: CROMOLYN SODIUM
     Dosage: 2 DOSAGE FORM, QD

REACTIONS (26)
  - Suicidal ideation [Not Recovered/Not Resolved]
  - Neuropsychological symptoms [Not Recovered/Not Resolved]
  - Gun shot wound [Not Recovered/Not Resolved]
  - Liver injury [Not Recovered/Not Resolved]
  - Gallbladder injury [Not Recovered/Not Resolved]
  - Renal injury [Not Recovered/Not Resolved]
  - Colon injury [Not Recovered/Not Resolved]
  - Traumatic lung injury [Not Recovered/Not Resolved]
  - Tic [Not Recovered/Not Resolved]
  - Depression [Not Recovered/Not Resolved]
  - Nervous system injury [Unknown]
  - Brain injury [Unknown]
  - Autism spectrum disorder [Unknown]
  - Loss of personal independence in daily activities [Unknown]
  - Anxiety [Unknown]
  - Fatty acid oxidation disorder [Unknown]
  - Aphasia [Unknown]
  - Balance disorder [Unknown]
  - Abnormal behaviour [Unknown]
  - Asthma [Unknown]
  - Cerebral disorder [Unknown]
  - Headache [Unknown]
  - Radioallergosorbent test positive [Unknown]
  - Food allergy [Unknown]
  - Psychomotor hyperactivity [Unknown]
  - Aggression [Unknown]

NARRATIVE: CASE EVENT DATE: 20040101
